FAERS Safety Report 20761772 (Version 1)
Quarter: 2022Q2

REPORT INFORMATION
  Report Type: Spontaneous
  Country: US (occurrence: None)
  Receive Date: 20220427
  Receipt Date: 20220427
  Transmission Date: 20220721
  Serious: Yes (Disabling)
  Sender: FDA-Public Use
  Company Number: None

PATIENT
  Sex: Female
  Weight: 80.7 kg

DRUGS (11)
  1. CAPECITABINE [Suspect]
     Active Substance: CAPECITABINE
     Indication: Breast cancer female
     Dosage: OTHER FREQUENCY : BID 14 ON 7 OFF;?
     Route: 048
  2. POTASSIUM CHLORIDE [Concomitant]
     Active Substance: POTASSIUM CHLORIDE
  3. UREA 20 EXTERNAL LOTION [Concomitant]
  4. ALPRAZOLAM [Concomitant]
     Active Substance: ALPRAZOLAM
  5. ASPIRIN [Concomitant]
     Active Substance: ASPIRIN
  6. DULOXETINE HYDROCHLORIDE [Concomitant]
     Active Substance: DULOXETINE HYDROCHLORIDE
  7. HYDROCHLOROTHIAZIDE [Concomitant]
  8. LIDOCAINE-PRILOCAINE EXTERNAL CREAM [Concomitant]
  9. OXYCODONE HCL [Concomitant]
  10. ROSUVASTATIN CALCIUM [Concomitant]
  11. TEMAZEPAM [Concomitant]
     Active Substance: TEMAZEPAM

REACTIONS (4)
  - Ejection fraction decreased [None]
  - Chest pain [None]
  - Chest discomfort [None]
  - Dyspnoea [None]
